FAERS Safety Report 7024790-7 (Version None)
Quarter: 2010Q4

REPORT INFORMATION
  Report Type: 
  Country: None (occurrence: None)
  Receive Date: 20101001
  Receipt Date: 20100922
  Transmission Date: 20110411
  Serious: Yes (Hospitalization)
  Sender: FDA-Public Use
  Company Number: US-JNJFOC-20100903929

PATIENT
  Sex: Male
  Weight: 44 kg

DRUGS (3)
  1. INFLIXIMAB, RECOMBINANT [Suspect]
     Indication: CROHN'S DISEASE
     Route: 042
  2. INFLIXIMAB, RECOMBINANT [Suspect]
     Route: 042
  3. 5-ASA [Concomitant]
     Indication: CROHN'S DISEASE

REACTIONS (2)
  - COLONIC STENOSIS [None]
  - CROHN'S DISEASE [None]
